FAERS Safety Report 14669551 (Version 4)
Quarter: 2018Q3

REPORT INFORMATION
  Report Type: Spontaneous
  Country: IT (occurrence: IT)
  Receive Date: 20180322
  Receipt Date: 20180921
  Transmission Date: 20181010
  Serious: Yes (Other)
  Sender: FDA-Public Use
  Company Number: IT-SHIRE-IT201809464

PATIENT

DRUGS (5)
  1. ADVATE [Suspect]
     Active Substance: ANTIHEMOPHILIC FACTOR, HUMAN RECOMBINANT
     Indication: HAEMOPHILIA A WITH ANTI FACTOR VIII
     Dosage: UNK, 3X A WEEK
     Route: 042
     Dates: start: 20180416
  2. ADVATE [Suspect]
     Active Substance: ANTIHEMOPHILIC FACTOR, HUMAN RECOMBINANT
     Indication: HAEMATOMA
     Dosage: 90 MG/KG, UNK
     Route: 042
  3. NOVOSEVEN [Concomitant]
     Active Substance: COAGULATION FACTOR VIIA RECOMBINANT HUMAN
     Indication: HAEMATOMA
     Dosage: 90 ?G/KG, UNK
  4. NOVOSEVEN [Concomitant]
     Active Substance: COAGULATION FACTOR VIIA RECOMBINANT HUMAN
     Dosage: UNK
  5. ADVATE [Suspect]
     Active Substance: ANTIHEMOPHILIC FACTOR, HUMAN RECOMBINANT
     Indication: HAEMOPHILIA A WITH ANTI FACTOR VIII
     Dosage: CYCLICAL
     Route: 042
     Dates: start: 20160601, end: 201804

REACTIONS (1)
  - Inhibiting antibodies [Recovering/Resolving]

NARRATIVE: CASE EVENT DATE: 20160926
